FAERS Safety Report 5066751-3 (Version None)
Quarter: 2006Q3

REPORT INFORMATION
  Report Type: 
  Country: None (occurrence: None)
  Receive Date: 20060801
  Receipt Date: 20060131
  Transmission Date: 20061208
  Serious: Yes (Other)
  Sender: FDA-Public Use
  Company Number: US-ROCHE-434734

PATIENT
  Age: 39 Year
  Sex: Female

DRUGS (5)
  1. PEGASYS [Suspect]
     Indication: HEPATITIS C
     Dosage: DOSING AMOUNT REPORTED AS '1 SHOT PER WEEK'.
     Route: 058
     Dates: start: 20050923
  2. COPEGUS [Suspect]
     Indication: HEPATITIS C
     Route: 048
     Dates: start: 20050923
  3. REMERON [Concomitant]
     Indication: DEPRESSION
     Route: 048
     Dates: start: 20040615
  4. VITAMIN [Concomitant]
     Indication: VITAMIN SUPPLEMENTATION
     Route: 048
  5. KLONOPIN [Concomitant]
     Indication: SOMNOLENCE
     Dosage: DRUG ADMINISTERED AT 0.5MG AT BEDTIME
     Route: 048

REACTIONS (16)
  - ALOPECIA [None]
  - ASTHENIA [None]
  - BACK PAIN [None]
  - BLOOD TRIGLYCERIDES INCREASED [None]
  - DIARRHOEA [None]
  - DYSURIA [None]
  - HERPES SIMPLEX [None]
  - HYPOAESTHESIA [None]
  - LOSS OF CONSCIOUSNESS [None]
  - NEUTROPHIL COUNT DECREASED [None]
  - RASH [None]
  - RED BLOOD CELL COUNT DECREASED [None]
  - SLEEP DISORDER [None]
  - URINARY TRACT INFECTION [None]
  - WEIGHT DECREASED [None]
  - WHITE BLOOD CELL COUNT DECREASED [None]
